FAERS Safety Report 13012776 (Version 1)
Quarter: 2016Q4

REPORT INFORMATION
  Report Type: Spontaneous
  Country: KR (occurrence: KR)
  Receive Date: 20161209
  Receipt Date: 20161209
  Transmission Date: 20170207
  Serious: Yes (Death, Other)
  Sender: FDA-Public Use
  Company Number: PHHY2016KR168049

PATIENT
  Age: 17 Year
  Sex: Male

DRUGS (1)
  1. IMATINIB [Suspect]
     Active Substance: IMATINIB
     Indication: ACUTE LYMPHOCYTIC LEUKAEMIA
     Route: 065

REACTIONS (5)
  - Septic shock [Unknown]
  - Therapeutic response decreased [Unknown]
  - Multiple organ dysfunction syndrome [Fatal]
  - Drug resistance [Unknown]
  - Pneumonia [Unknown]
